FAERS Safety Report 4896472-9 (Version None)
Quarter: 2006Q1

REPORT INFORMATION
  Report Type: 
  Country: None (occurrence: None)
  Receive Date: 20060126
  Receipt Date: 20060111
  Transmission Date: 20060701
  Serious: Yes (Death, Hospitalization, Other)
  Sender: FDA-Public Use
  Company Number: A-US2005-09709

PATIENT
  Age: 66 Year
  Sex: Female
  Weight: 66.2 kg

DRUGS (8)
  1. TRACLEER [Suspect]
     Indication: PULMONARY HYPERTENSION
     Dosage: SEE IMAGE
     Route: 048
     Dates: start: 20040901, end: 20041001
  2. TRACLEER [Suspect]
     Indication: PULMONARY HYPERTENSION
     Dosage: SEE IMAGE
     Route: 048
     Dates: start: 20041001, end: 20050401
  3. TRACLEER [Suspect]
     Indication: PULMONARY HYPERTENSION
     Dosage: SEE IMAGE
     Route: 048
     Dates: start: 20050401, end: 20050401
  4. LORAZEPAM [Suspect]
  5. LASIX [Concomitant]
  6. LISINOPRIL [Concomitant]
  7. TAMOXIFEN CITRATE [Concomitant]
  8. PROCARDIA [Concomitant]

REACTIONS (11)
  - ALANINE AMINOTRANSFERASE INCREASED [None]
  - APNOEA [None]
  - ASPARTATE AMINOTRANSFERASE INCREASED [None]
  - BRADYCARDIA [None]
  - CARDIAC ARREST [None]
  - DISEASE PROGRESSION [None]
  - EPISTAXIS [None]
  - HYPOXIA [None]
  - LABILE BLOOD PRESSURE [None]
  - PERFORMANCE STATUS DECREASED [None]
  - PULMONARY HYPERTENSION [None]
